FAERS Safety Report 5084810-6 (Version None)
Quarter: 2006Q3

REPORT INFORMATION
  Report Type: 
  Country: None (occurrence: None)
  Receive Date: 20060815
  Receipt Date: 20060731
  Transmission Date: 20061208
  Serious: Yes (Other)
  Sender: FDA-Public Use
  Company Number: 062-20785-05060313

PATIENT
  Age: 44 Year
  Sex: Male

DRUGS (1)
  1. THALOMIDE - PHARMION (THALIDOMIDE) (CAPSULES) [Suspect]
     Indication: BEHCET'S SYNDROME
     Dosage: 50 MG, 1 IN 1 D, ORAL
     Route: 048
     Dates: start: 20031205

REACTIONS (2)
  - PREGNANCY OF PARTNER [None]
  - TRANSMISSION OF DRUG VIA SEMEN [None]
